FAERS Safety Report 11030456 (Version 1)
Quarter: 2015Q2

REPORT INFORMATION
  Report Type: Spontaneous
  Country: US (occurrence: None)
  Receive Date: 20150409
  Receipt Date: 20150409
  Transmission Date: 20150821
  Serious: Yes (Other)
  Sender: FDA-Public Use
  Company Number: 2015FE00335

PATIENT
  Age: 14 Year
  Sex: Female

DRUGS (1)
  1. STIMATE [Suspect]
     Active Substance: DESMOPRESSIN ACETATE
     Indication: VON WILLEBRAND^S DISEASE
     Dosage: 1 SPRAY IN 1 NOSTRIL DAILY AS NEEDED, NASAL
     Route: 045
     Dates: start: 20140814, end: 20141001

REACTIONS (1)
  - Drug ineffective [None]
